FAERS Safety Report 14371841 (Version 1)
Quarter: 2018Q1

REPORT INFORMATION
  Report Type: Spontaneous
  Country: US (occurrence: US)
  Receive Date: 20180109
  Receipt Date: 20180109
  Transmission Date: 20180509
  Serious: No
  Sender: FDA-Public Use
  Company Number: None

PATIENT
  Sex: Female
  Weight: 67.5 kg

DRUGS (5)
  1. CRYSELLE [Concomitant]
     Active Substance: ETHINYL ESTRADIOL\NORGESTREL
  2. KENALOG-40 [Suspect]
     Active Substance: TRIAMCINOLONE ACETONIDE
     Indication: ECZEMA
     Route: 030
     Dates: start: 20171030, end: 20171030
  3. ALBUTEROL. [Concomitant]
     Active Substance: ALBUTEROL
  4. HYDROXYZINE [Concomitant]
     Active Substance: HYDROXYZINE HYDROCHLORIDE
  5. LACTAID [Concomitant]
     Active Substance: LACTASE

REACTIONS (14)
  - Nausea [None]
  - Injection site indentation [None]
  - Muscle spasms [None]
  - Pain in extremity [None]
  - Increased appetite [None]
  - Fatigue [None]
  - Product label issue [None]
  - Menorrhagia [None]
  - Headache [None]
  - Hypoglycaemia [None]
  - Asthenia [None]
  - Anxiety [None]
  - Arthralgia [None]
  - Back pain [None]
